FAERS Safety Report 5287455-8 (Version None)
Quarter: 2007Q1

REPORT INFORMATION
  Report Type: 
  Country: None (occurrence: None)
  Receive Date: 20070116
  Receipt Date: 20060920
  Transmission Date: 20070707
  Serious: No
  Sender: FDA-Public Use
  Company Number: 2006SP003371

PATIENT
  Age: 50 Year
  Sex: Female
  Weight: 81.6475 kg

DRUGS (4)
  1. LUNESTA [Suspect]
     Indication: INSOMNIA
     Dosage: 3 MG 1X ORAL
     Route: 048
     Dates: start: 20060918, end: 20060918
  2. SKELAXIN [Concomitant]
  3. ADVIL [Concomitant]
  4. SINGULAIR [Concomitant]

REACTIONS (4)
  - DRUG INEFFECTIVE [None]
  - DYSGEUSIA [None]
  - INSOMNIA [None]
  - NAUSEA [None]
